FAERS Safety Report 20087676 (Version 1)
Quarter: 2021Q4

REPORT INFORMATION
  Report Type: Spontaneous
  Country: AU (occurrence: AU)
  Receive Date: 20211118
  Receipt Date: 20211118
  Transmission Date: 20220303
  Serious: Yes (Other)
  Sender: FDA-Public Use
  Company Number: AU-SAMSUNG BIOEPIS-SB-2021-26755

PATIENT
  Age: 65 Year
  Sex: Female

DRUGS (5)
  1. ETANERCEPT [Suspect]
     Active Substance: ETANERCEPT
     Indication: Chronic graft versus host disease
     Dosage: UNKNOWN
     Route: 065
  2. AZATHIOPRINE [Suspect]
     Active Substance: AZATHIOPRINE
     Indication: Chronic graft versus host disease
     Dosage: UNKNOWN
     Route: 065
  3. METHOTREXATE [Suspect]
     Active Substance: METHOTREXATE
     Indication: Chronic graft versus host disease
     Dosage: UNKNOWN
     Route: 065
  4. CYCLOSERINE [Suspect]
     Active Substance: CYCLOSERINE
     Indication: Chronic graft versus host disease
     Dosage: UNKNOWN
     Route: 065
  5. PREDNISONE [Suspect]
     Active Substance: PREDNISONE
     Indication: Chronic graft versus host disease
     Dosage: UNKNOWN
     Route: 065

REACTIONS (4)
  - Disease progression [Unknown]
  - Graft versus host disease in lung [Unknown]
  - Drug ineffective [Unknown]
  - Product use in unapproved indication [Unknown]
